FAERS Safety Report 17171001 (Version 6)
Quarter: 2020Q4

REPORT INFORMATION
  Report Type: Spontaneous
  Country: JP (occurrence: JP)
  Receive Date: 20191218
  Receipt Date: 20201030
  Transmission Date: 20210113
  Serious: Yes (Hospitalization, Other)
  Sender: FDA-Public Use
  Company Number: JP-CELGENEUS-JPN-20191204733

PATIENT
  Age: 50 Year
  Sex: Female
  Weight: 53.7 kg

DRUGS (39)
  1. CC-5013 [Suspect]
     Active Substance: LENALIDOMIDE
     Dosage: 20 MILLIGRAM
     Route: 048
     Dates: start: 20191017, end: 20191122
  2. LENADEX [Suspect]
     Active Substance: DEXAMETHASONE ACETATE
     Route: 048
     Dates: start: 20191123, end: 20191210
  3. MAGMITT [Concomitant]
     Active Substance: MAGNESIUM OXIDE
     Dosage: 1980 MILLIGRAM
     Route: 048
     Dates: start: 20191119
  4. ZOVIRAX [Concomitant]
     Active Substance: ACYCLOVIR
     Indication: ANTIVIRAL PROPHYLAXIS
     Dosage: 200 MILLIGRAM
     Route: 048
     Dates: start: 20191008
  5. RELUMINA [Concomitant]
     Active Substance: RELUGOLIX
     Indication: MENORRHAGIA
     Dosage: 40 MILLIGRAM
     Route: 048
     Dates: start: 20191018
  6. DARATUMUMAB [Suspect]
     Active Substance: DARATUMUMAB
     Indication: PLASMA CELL MYELOMA
     Route: 058
     Dates: start: 20191007, end: 20191118
  7. VELCADE [Suspect]
     Active Substance: BORTEZOMIB
     Route: 058
     Dates: start: 2019, end: 20191210
  8. OXINORM [Concomitant]
     Indication: CHEST PAIN
     Route: 048
     Dates: start: 20190919, end: 20190924
  9. POTASSIUM L-ASPARTATE [Concomitant]
     Active Substance: POTASSIUM ASPARTATE ANHYDROUS
     Dosage: 30 MILLIEQUIVALENTS
     Route: 041
     Dates: start: 20191004, end: 20191007
  10. LANSOPRAZOLE. [Concomitant]
     Active Substance: LANSOPRAZOLE
     Indication: GASTRITIS PROPHYLAXIS
     Dosage: 15 MILLIGRAM
     Route: 048
     Dates: start: 20190920
  11. OXYCONTIN [Concomitant]
     Active Substance: OXYCODONE HYDROCHLORIDE
     Dosage: 10 MILLIGRAM
     Route: 048
     Dates: start: 20191029
  12. FUROSEMIDE. [Concomitant]
     Active Substance: FUROSEMIDE
     Indication: HYPERCALCAEMIA
     Dosage: 40 MILLIGRAM
     Route: 041
     Dates: start: 20190925, end: 20191013
  13. LEVOFLOXACIN HEMIHYDRATE [Concomitant]
     Active Substance: LEVOFLOXACIN
     Indication: URINARY TRACT INFECTION
     Dosage: 500 MILLIGRAM
     Route: 048
     Dates: start: 20191112
  14. CC-5013 [Suspect]
     Active Substance: LENALIDOMIDE
     Dosage: 15 MILLIGRAM
     Route: 048
     Dates: start: 20191123, end: 20191210
  15. LENADEX [Suspect]
     Active Substance: DEXAMETHASONE ACETATE
     Indication: PLASMA CELL MYELOMA
     Route: 048
     Dates: start: 20191007, end: 20191122
  16. ZOLPIDEM TARTRATE. [Concomitant]
     Active Substance: ZOLPIDEM TARTRATE
     Indication: INSOMNIA
     Route: 048
     Dates: start: 20191008
  17. OXYCONTIN [Concomitant]
     Active Substance: OXYCODONE HYDROCHLORIDE
     Indication: CHEST PAIN
     Dosage: 10 MILLIGRAM
     Route: 048
     Dates: start: 20190925, end: 20191009
  18. PROMAC [Concomitant]
     Active Substance: NITROFURANTOIN
     Indication: TASTE DISORDER
     Dosage: 1 GRAM
     Route: 048
     Dates: start: 20191108
  19. RANMARK [Concomitant]
     Active Substance: DENOSUMAB
     Indication: PROPHYLAXIS
     Route: 058
     Dates: start: 20190920, end: 20190920
  20. DARATUMUMAB [Suspect]
     Active Substance: DARATUMUMAB
     Route: 058
     Dates: start: 20191119, end: 20191210
  21. PANTETHINE [Concomitant]
     Active Substance: PANTETHINE
     Indication: CONSTIPATION
     Dosage: 300 MILLIGRAM
     Route: 048
     Dates: start: 20190919, end: 20191118
  22. MAGMITT [Concomitant]
     Active Substance: MAGNESIUM OXIDE
     Indication: CONSTIPATION
     Dosage: 990 MILLIGRAM
     Route: 048
     Dates: start: 20190919, end: 20191118
  23. BAKTAR [Concomitant]
     Active Substance: SULFAMETHOXAZOLE\TRIMETHOPRIM
     Indication: INFECTION PROPHYLAXIS
     Route: 048
     Dates: start: 20190926
  24. PRIMPERAN [Concomitant]
     Active Substance: METOCLOPRAMIDE HYDROCHLORIDE
     Indication: NAUSEA
     Route: 041
     Dates: start: 20190919, end: 20191013
  25. TRAVELMIN [Concomitant]
     Indication: NAUSEA
     Route: 048
     Dates: start: 20190920
  26. CALONAL [Concomitant]
     Active Substance: ACETAMINOPHEN
     Indication: PYREXIA
     Route: 048
     Dates: start: 20191008, end: 20191008
  27. CC-5013 [Suspect]
     Active Substance: LENALIDOMIDE
     Indication: PLASMA CELL MYELOMA
     Dosage: 25 MILLIGRAM
     Route: 048
     Dates: start: 20191007, end: 20191009
  28. ADJUST-A KOWA [Concomitant]
     Indication: CONSTIPATION
     Route: 048
     Dates: start: 20190927
  29. POTASSIUM L-ASPARTATE [Concomitant]
     Active Substance: POTASSIUM ASPARTATE ANHYDROUS
     Indication: HYPOKALAEMIA
     Dosage: 20 MILLIEQUIVALENTS
     Route: 041
     Dates: start: 20190920, end: 20191003
  30. POTASSIUM L-ASPARTATE [Concomitant]
     Active Substance: POTASSIUM ASPARTATE ANHYDROUS
     Dosage: 20 MILLIEQUIVALENTS
     Route: 041
     Dates: start: 20191008, end: 20191013
  31. LUTORAL [Concomitant]
     Active Substance: CHLORMADINONE ACETATE
     Indication: MENORRHAGIA
     Dosage: 4 MILLIGRAM
     Route: 048
     Dates: start: 20191001, end: 20191011
  32. SODIUM FERROUS CITRATE [Concomitant]
     Active Substance: SODIUM FERROUS CITRATE
     Indication: ANAEMIA
     Dosage: 100 MILLIGRAM
     Route: 048
     Dates: start: 20191004, end: 20191007
  33. VELCADE [Suspect]
     Active Substance: BORTEZOMIB
     Indication: PLASMA CELL MYELOMA
     Route: 058
     Dates: start: 20191007, end: 20191129
  34. SODIUM CHLORIDE. [Concomitant]
     Active Substance: SODIUM CHLORIDE
     Indication: PRODUCT USED FOR UNKNOWN INDICATION
     Dosage: 2000 MILLILITER
     Route: 041
     Dates: start: 20190919
  35. RED BLOOD CELLS LEUKOCYTES REDUCED [Concomitant]
     Dosage: 2 UNIT
     Route: 041
     Dates: start: 20191009, end: 20191009
  36. NOVAMIN [Concomitant]
     Indication: NAUSEA
     Dosage: 10 MILLIGRAM
     Route: 048
     Dates: start: 20191010, end: 20191106
  37. PANTETHINE [Concomitant]
     Active Substance: PANTETHINE
     Dosage: 600 MILLIGRAM
     Route: 048
     Dates: start: 20191119
  38. OXYCONTIN [Concomitant]
     Active Substance: OXYCODONE HYDROCHLORIDE
     Dosage: 20 MILLIGRAM
     Route: 048
     Dates: start: 20191009, end: 20191028
  39. RED BLOOD CELLS LEUKOCYTES REDUCED [Concomitant]
     Indication: ANAEMIA
     Dosage: 2 UNIT
     Route: 041
     Dates: start: 20190924, end: 20190924

REACTIONS (1)
  - Intraductal proliferative breast lesion [Recovered/Resolved]

NARRATIVE: CASE EVENT DATE: 20191209
